FAERS Safety Report 15853705 (Version 2)
Quarter: 2019Q2

REPORT INFORMATION
  Report Type: Spontaneous
  Country: US (occurrence: US)
  Receive Date: 20190122
  Receipt Date: 20190422
  Transmission Date: 20190711
  Serious: No
  Sender: FDA-Public Use
  Company Number: US-PFIZER INC-2019028487

PATIENT
  Age: 81 Year
  Sex: Male
  Weight: 78.91 kg

DRUGS (1)
  1. XELJANZ XR [Suspect]
     Active Substance: TOFACITINIB CITRATE
     Indication: RHEUMATOID ARTHRITIS
     Dosage: 11 MG, DAILY
     Route: 048
     Dates: start: 20181110

REACTIONS (5)
  - Dizziness [Recovering/Resolving]
  - Malaise [Unknown]
  - Pyrexia [Unknown]
  - Headache [Recovering/Resolving]
  - Rhinorrhoea [Unknown]
